FAERS Safety Report 8249140-X (Version None)
Quarter: 2012Q2

REPORT INFORMATION
  Report Type: 
  Country: None (occurrence: None)
  Receive Date: 20120402
  Receipt Date: 20120327
  Transmission Date: 20120825
  Serious: No
  Sender: FDA-Public Use
  Company Number: US-PFIZER INC-2012079428

PATIENT
  Sex: Female
  Weight: 73 kg

DRUGS (7)
  1. ETANERCEPT [Concomitant]
     Indication: PSORIATIC ARTHROPATHY
     Dosage: 50 MG, WEEKLY
  2. CELEBREX [Suspect]
     Indication: PSORIATIC ARTHROPATHY
     Dosage: 200 MG, DAILY
     Dates: start: 20120322
  3. SINGULAIR [Concomitant]
     Indication: ASTHMA
     Dosage: 10 MG, DAILY
  4. CELEBREX [Suspect]
     Indication: OSTEOPOROSIS
  5. ACTONEL [Concomitant]
     Indication: OSTEOPOROSIS
     Dosage: UNK
  6. SYNTHROID [Concomitant]
     Indication: HYPOTHYROIDISM
     Dosage: 75 UG, DAILY
  7. FORADIL [Concomitant]
     Indication: ASTHMA
     Dosage: UNK

REACTIONS (1)
  - ABNORMAL DREAMS [None]
